FAERS Safety Report 6760885-0 (Version None)
Quarter: 2010Q2

REPORT INFORMATION
  Report Type: 
  Country: None (occurrence: None)
  Receive Date: 20100608
  Receipt Date: 20100602
  Transmission Date: 20101027
  Serious: Yes (Death)
  Sender: FDA-Public Use
  Company Number: PHHY2010JP21826

PATIENT
  Age: 65 Year
  Sex: Female

DRUGS (9)
  1. RASILEZ [Suspect]
     Indication: HYPERTENSION
     Dosage: 150 MG, DAILY
     Route: 048
     Dates: start: 20100118
  2. COUGHCODE [Suspect]
     Dosage: 6 DF, UNK
     Route: 048
  3. OLMETEC [Concomitant]
     Indication: HYPERTENSION
     Dosage: 40 MG
     Route: 048
     Dates: start: 20100306
  4. CINALONG [Concomitant]
     Indication: HYPERTENSION
     Dosage: 10 MG
     Route: 048
     Dates: start: 20100306
  5. PERSANTINE [Concomitant]
     Indication: RENAL FAILURE CHRONIC
     Dosage: 300 MG
     Route: 048
     Dates: start: 20100306
  6. MEVALOTIN [Concomitant]
     Indication: HYPERCHOLESTEROLAEMIA
     Dosage: 5 MG
     Route: 048
     Dates: start: 20100306
  7. ALFAROL [Concomitant]
     Indication: CALCIUM METABOLISM DISORDER
     Dosage: 1 MICRO GRAM
     Route: 048
     Dates: start: 20100306
  8. KETOBUN A [Concomitant]
     Indication: HYPERURICAEMIA
     Dosage: 200 MG
     Route: 048
     Dates: start: 20100306
  9. ELASTASE [Concomitant]
     Indication: ARTERIOSCLEROSIS
     Dosage: 7200 IU
     Route: 048
     Dates: start: 20100306

REACTIONS (5)
  - BRONCHITIS [None]
  - CARDIAC FAILURE [None]
  - DEHYDRATION [None]
  - PRODUCTIVE COUGH [None]
  - PYREXIA [None]
